FAERS Safety Report 7690346-6 (Version None)
Quarter: 2011Q3

REPORT INFORMATION
  Report Type: 
  Country: None (occurrence: None)
  Receive Date: 20110818
  Receipt Date: 20110815
  Transmission Date: 20111222
  Serious: Yes (Other)
  Sender: FDA-Public Use
  Company Number: US-B.I. PHARMACEUTICALS,INC./RIDGEFIELD-2011-BP-19991BP

PATIENT
  Sex: Male

DRUGS (4)
  1. AGGRENOX [Suspect]
  2. ZOLOFT [Concomitant]
  3. ASPIRIN [Concomitant]
  4. ZESTRIL [Concomitant]

REACTIONS (3)
  - DROOLING [None]
  - ASTHENIA [None]
  - GAIT DISTURBANCE [None]
